FAERS Safety Report 5809065-3 (Version None)
Quarter: 2008Q3

REPORT INFORMATION
  Report Type: 
  Country: None (occurrence: None)
  Receive Date: 20080711
  Receipt Date: 20080711
  Transmission Date: 20090109
  Serious: Yes (Other)
  Sender: FDA-Public Use
  Company Number: None

PATIENT
  Age: 53 Year
  Sex: Female
  Weight: 58.9676 kg

DRUGS (1)
  1. MYOBLOC [Suspect]
     Indication: TORTICOLLIS

REACTIONS (5)
  - APTYALISM [None]
  - CHOKING [None]
  - DRY MOUTH [None]
  - GLOSSODYNIA [None]
  - MASTICATION DISORDER [None]
